FAERS Safety Report 7379308-6 (Version None)
Quarter: 2011Q1

REPORT INFORMATION
  Report Type: 
  Country: None (occurrence: None)
  Receive Date: 20110329
  Receipt Date: 20110321
  Transmission Date: 20110831
  Serious: Yes (Hospitalization)
  Sender: FDA-Public Use
  Company Number: US-BIOGENIDEC-2011BI010611

PATIENT
  Age: 71 Year
  Sex: Female

DRUGS (2)
  1. FLOMAX [Concomitant]
  2. AVONEX [Suspect]
     Indication: MULTIPLE SCLEROSIS
     Route: 030
     Dates: start: 20030101

REACTIONS (4)
  - LOSS OF CONSCIOUSNESS [None]
  - BLOOD SODIUM DECREASED [None]
  - FALL [None]
  - TREMOR [None]
